FAERS Safety Report 9693538 (Version 1)
Quarter: 2013Q4

REPORT INFORMATION
  Report Type: Spontaneous
  Country: PE (occurrence: PE)
  Receive Date: 20131118
  Receipt Date: 20131118
  Transmission Date: 20140711
  Serious: Yes (Death)
  Sender: FDA-Public Use
  Company Number: PE-GLAXOSMITHKLINE-A1050031A

PATIENT
  Age: 53 Year
  Sex: Male

DRUGS (1)
  1. SERETIDE [Suspect]
     Indication: ASTHMA
     Dosage: 4PUFF PER DAY
     Dates: start: 20120530

REACTIONS (1)
  - Pneumonia [Fatal]
